FAERS Safety Report 8024011-2 (Version None)
Quarter: 2011Q4

REPORT INFORMATION
  Report Type: 
  Country: None (occurrence: None)
  Receive Date: 20111130
  Receipt Date: 20110113
  Transmission Date: 20120403
  Serious: Yes (Other)
  Sender: FDA-Public Use
  Company Number: 317884

PATIENT
  Age: 43 Year
  Sex: Male
  Weight: 68 kg

DRUGS (4)
  1. LANTUS [Suspect]
     Indication: TYPE 1 DIABETES MELLITUS
     Dosage: UNK, SUBCUTANEOUS
     Route: 058
  2. NOVOLOG [Suspect]
     Indication: TYPE 1 DIABETES MELLITUS
     Dosage: SLIDING SCALE 4 TIMES DAILY AC MEALS AND HS
  3. NOVOLOG MIX 70/30 [Suspect]
  4. NOVOLOG MIX 70/30 [Suspect]
     Indication: TYPE 1 DIABETES MELLITUS
     Dosage: 70-100 IU DAILY, SUBCUTANEOUS
     Route: 058

REACTIONS (1)
  - BLOOD GLUCOSE DECREASED [None]
